FAERS Safety Report 5810924-6 (Version None)
Quarter: 2008Q3

REPORT INFORMATION
  Report Type: 
  Country: None (occurrence: None)
  Receive Date: 20080716
  Receipt Date: 20080707
  Transmission Date: 20090109
  Serious: Yes (Life-Threatening, Hospitalization, Disabling, Other)
  Sender: FDA-Public Use
  Company Number: PHHY2008JP11618

PATIENT
  Sex: Female
  Weight: 50 kg

DRUGS (4)
  1. FEMARA [Suspect]
     Indication: BREAST CANCER
     Dosage: 2.5 MG/DAY
     Route: 048
     Dates: start: 20061013, end: 20080602
  2. FARESTON ^LAAKEFARMOS^ [Suspect]
     Indication: BREAST CANCER RECURRENT
     Dosage: 120 MG/DAY
     Route: 048
     Dates: start: 20080607, end: 20080609
  3. LASIX [Suspect]
     Indication: BREAST CANCER RECURRENT
     Dosage: 20 MG, BID
     Route: 048
     Dates: start: 20080603, end: 20080609
  4. TOREMIFENE [Suspect]
     Indication: BREAST CANCER
     Dosage: 120 MG/DAY
     Route: 048
     Dates: start: 20080607, end: 20080609

REACTIONS (12)
  - BLOOD ALKALINE PHOSPHATASE INCREASED [None]
  - BLOOD BILIRUBIN INCREASED [None]
  - BLOOD LACTATE DEHYDROGENASE INCREASED [None]
  - CEREBRAL INFARCTION [None]
  - DYSLALIA [None]
  - DYSPNOEA [None]
  - GAMMA-GLUTAMYLTRANSFERASE INCREASED [None]
  - METASTASES TO LUNG [None]
  - PERICARDIAL DRAINAGE [None]
  - PERICARDIAL EFFUSION [None]
  - PLEURAL EFFUSION [None]
  - PROTHROMBIN TIME PROLONGED [None]
